FAERS Safety Report 5715466-4 (Version None)
Quarter: 2008Q2

REPORT INFORMATION
  Report Type: 
  Country: None (occurrence: None)
  Receive Date: 20080422
  Receipt Date: 20080409
  Transmission Date: 20081010
  Serious: Yes (Hospitalization, Other)
  Sender: FDA-Public Use
  Company Number: 163-21880-08031118

PATIENT
  Age: 60 Year
  Sex: Male
  Weight: 79.5 kg

DRUGS (24)
  1. REVLIMID [Suspect]
     Indication: CHRONIC LYMPHOCYTIC LEUKAEMIA
     Dosage: 2.5 MG, QOD D1-21 OF 28 DAY CYCLE, ORAL, 2.5 MG, QOD DAYS 1-21, 28-DAY CYCLE, ORAL
     Route: 048
     Dates: start: 20080324, end: 20080301
  2. REVLIMID [Suspect]
     Indication: CHRONIC LYMPHOCYTIC LEUKAEMIA
     Dosage: 2.5 MG, QOD D1-21 OF 28 DAY CYCLE, ORAL, 2.5 MG, QOD DAYS 1-21, 28-DAY CYCLE, ORAL
     Route: 048
     Dates: start: 20080225, end: 20080324
  3. RITUXIMAB (RITUXIMAB) [Suspect]
     Indication: CHRONIC LYMPHOCYTIC LEUKAEMIA
     Dosage: 375 MG/M2, ON DAY 1, INTRAVENOUS, 375 MG/M2, DAY 1-28 DAY CYLCE, INTRAVENOUS
     Route: 042
     Dates: start: 20080324, end: 20080301
  4. RITUXIMAB (RITUXIMAB) [Suspect]
     Indication: CHRONIC LYMPHOCYTIC LEUKAEMIA
     Dosage: 375 MG/M2, ON DAY 1, INTRAVENOUS, 375 MG/M2, DAY 1-28 DAY CYLCE, INTRAVENOUS
     Route: 042
     Dates: start: 20080225, end: 20080314
  5. FLUDARABINE PHOSPHATE [Suspect]
     Indication: CHRONIC LYMPHOCYTIC LEUKAEMIA
     Dosage: 25 MG/M2, DAYS 1-3 EVERY 28 DAYS, INTRAVENOUS
     Route: 042
     Dates: start: 20080324, end: 20080301
  6. FLUDARABINE PHOSPHATE [Suspect]
     Indication: CHRONIC LYMPHOCYTIC LEUKAEMIA
     Dosage: 25 MG/M2, DAYS 1-3 EVERY 28 DAYS, INTRAVENOUS
     Route: 042
     Dates: start: 20080225, end: 20080314
  7. SIMVASTATIN [Suspect]
     Indication: DRUG USE FOR UNKNOWN INDICATION
     Dosage: 10 MG, QHS, ORAL
     Route: 048
     Dates: start: 20070724, end: 20080301
  8. LISINOPRIL [Concomitant]
  9. ACYCLOVIR [Concomitant]
  10. ATIVAN [Concomitant]
  11. COMPAZINE [Concomitant]
  12. BETAMETHASONE DIPROPIONATE (BETAMETHASONE DIPROPIONATE) [Concomitant]
  13. DOXEPIN HCL [Concomitant]
  14. EFFEXOR XR [Concomitant]
  15. HYDROXYZINE HCL (HYDROXYZINE HYDROCHLORIDE) [Concomitant]
  16. LAC-HYDRIN (AMMONIUM LACTATE) [Concomitant]
  17. MEPRON [Concomitant]
  18. PRILOSEC [Concomitant]
  19. TRETINOIN [Concomitant]
  20. TRIAMCINOLONE [Concomitant]
  21. WELLBUTRIN SR [Concomitant]
  22. TRAZODONE HCL [Concomitant]
  23. FUROSEMIDE [Concomitant]
  24. BETAMETHASONE DIPROPIONATE (BETAMETHASONE DIPROPIONATE) [Concomitant]

REACTIONS (7)
  - INFLUENZA [None]
  - PHARYNGOLARYNGEAL PAIN [None]
  - PRURITUS [None]
  - RASH [None]
  - RHABDOMYOLYSIS [None]
  - RHINITIS [None]
  - VIRUS CULTURE POSITIVE [None]
